FAERS Safety Report 6464191-3 (Version None)
Quarter: 2009Q4

REPORT INFORMATION
  Report Type: 
  Country: None (occurrence: None)
  Receive Date: 20091201
  Receipt Date: 20091119
  Transmission Date: 20100525
  Serious: Yes (Other)
  Sender: FDA-Public Use
  Company Number: PHEH2009US16368

PATIENT
  Sex: Female

DRUGS (8)
  1. RECLAST [Suspect]
     Dosage: UNK
     Dates: start: 20080101
  2. FLOMAX [Concomitant]
  3. NEXIUM [Concomitant]
  4. ZYRTEC [Concomitant]
  5. BABY ASPIRIN [Concomitant]
  6. LYRICA [Concomitant]
  7. PREDNISONE TAB [Concomitant]
  8. VICODIN [Concomitant]

REACTIONS (7)
  - DYSPNOEA [None]
  - FALL [None]
  - FIBROMYALGIA [None]
  - GAIT DISTURBANCE [None]
  - MOVEMENT DISORDER [None]
  - MUSCLE CONTRACTIONS INVOLUNTARY [None]
  - MUSCLE TIGHTNESS [None]
